FAERS Safety Report 6423099-X (Version None)
Quarter: 2009Q4

REPORT INFORMATION
  Report Type: 
  Country: None (occurrence: None)
  Receive Date: 20091028
  Receipt Date: 20091014
  Transmission Date: 20100525
  Serious: Yes (Other)
  Sender: FDA-Public Use
  Company Number: 2009AL006682

PATIENT
  Age: 59 Year
  Sex: Male

DRUGS (3)
  1. DIAZEPAM [Suspect]
  2. TRAMADOL HYDROCHLORIDE [Suspect]
  3. PREGABALIN [Concomitant]

REACTIONS (3)
  - MOOD SWINGS [None]
  - NIGHTMARE [None]
  - SUICIDAL IDEATION [None]
